FAERS Safety Report 9602258 (Version 1)
Quarter: 2013Q4

REPORT INFORMATION
  Report Type: Spontaneous
  Country: CA (occurrence: CA)
  Receive Date: 20131007
  Receipt Date: 20131007
  Transmission Date: 20140711
  Serious: Yes (Death, Hospitalization, Other)
  Sender: FDA-Public Use
  Company Number: CA-PFIZER INC-2013281256

PATIENT
  Age: 73 Year
  Sex: Male
  Weight: 68 kg

DRUGS (15)
  1. PREDNISONE [Concomitant]
     Dosage: UNK
     Dates: start: 20120919
  2. FUROSEMIDE [Concomitant]
     Dosage: UNK
     Dates: start: 20130205
  3. METOPROLOL [Concomitant]
     Dosage: UNK
     Dates: start: 20130110
  4. CRIZOTINIB [Suspect]
     Indication: LUNG NEOPLASM MALIGNANT
     Dosage: 250 MG, 2X/DAY
     Route: 048
     Dates: start: 20121024, end: 20130130
  5. XGEVA [Suspect]
     Indication: METASTASES TO BONE
     Dosage: 120MG/1.7 ML, MONTHLY
     Route: 058
     Dates: start: 20120831
  6. XGEVA [Suspect]
     Dosage: UNK
     Dates: start: 20120928
  7. XGEVA [Suspect]
     Dosage: UNK
     Dates: start: 20121026
  8. XGEVA [Suspect]
     Dosage: UNK
     Dates: start: 20121122
  9. XGEVA [Suspect]
     Dosage: UNK
     Dates: start: 20130117
  10. MORPHINE [Concomitant]
     Dosage: UNK
  11. PRADAXA [Concomitant]
  12. HYDROMORPH CONTIN [Concomitant]
     Dosage: UNK
     Dates: start: 20120728
  13. DILAUDID [Concomitant]
     Dosage: UNK
     Dates: start: 20121212
  14. CISPLATIN [Concomitant]
     Dosage: UNK
     Dates: start: 20120530, end: 20130108
  15. GEMCITABINE [Concomitant]
     Dosage: UNK
     Dates: start: 20120530, end: 20120801

REACTIONS (10)
  - Pneumonia [Fatal]
  - Atrial fibrillation [Fatal]
  - Disease progression [Fatal]
  - Lung neoplasm malignant [Fatal]
  - Pneumonia [Unknown]
  - Cardiac failure congestive [Unknown]
  - Spinal fracture [Unknown]
  - Dyspnoea [Recovered/Resolved]
  - Odynophagia [Unknown]
  - Cough [Recovered/Resolved]
